FAERS Safety Report 14127667 (Version 3)
Quarter: 2018Q1

REPORT INFORMATION
  Report Type: Report from Study
  Country: DE (occurrence: DE)
  Receive Date: 20171026
  Receipt Date: 20180224
  Transmission Date: 20180508
  Serious: Yes (Death, Hospitalization, Other)
  Sender: FDA-Public Use
  Company Number: PHHY2017DE156577

PATIENT
  Age: 69 Year
  Sex: Male
  Weight: 72 kg

DRUGS (16)
  1. TAMSULOSIN [Concomitant]
     Active Substance: TAMSULOSIN
     Indication: BENIGN PROSTATIC HYPERPLASIA
     Dosage: 1 DF, QD
     Route: 048
     Dates: start: 20101108
  2. ENTRESTO [Suspect]
     Active Substance: SACUBITRIL\VALSARTAN
     Dosage: UNK
     Route: 048
     Dates: start: 20170524, end: 20171025
  3. XIPAMIDE [Suspect]
     Active Substance: XIPAMIDE
     Indication: OEDEMA PERIPHERAL
     Dosage: 1 DF, QD
     Route: 048
     Dates: start: 20170530
  4. FUROSEMIDE. [Suspect]
     Active Substance: FUROSEMIDE
     Indication: OEDEMA PERIPHERAL
     Dosage: 1 DF (125 MG), BID
     Route: 048
     Dates: start: 20170823
  5. SYMBICORT [Concomitant]
     Active Substance: BUDESONIDE\FORMOTEROL FUMARATE DIHYDRATE
     Indication: CHRONIC OBSTRUCTIVE PULMONARY DISEASE
     Dosage: 1 DF, BID
     Route: 055
     Dates: start: 20160407
  6. TORASEMIDE [Concomitant]
     Active Substance: TORSEMIDE
     Indication: OEDEMA PERIPHERAL
     Dosage: 1 DF QD AND 2 DF QD
     Route: 048
     Dates: start: 20170301, end: 201709
  7. LEVOTHYROXINE. [Concomitant]
     Active Substance: LEVOTHYROXINE
     Indication: HYPOTHYROIDISM
     Dosage: 1 DF, QD
     Route: 048
     Dates: start: 20170411
  8. ASPIRIN. [Concomitant]
     Active Substance: ASPIRIN
     Indication: CORONARY ARTERY DISEASE
     Dosage: 1 DF, QD
     Route: 048
     Dates: start: 20170406
  9. ENTRESTO [Suspect]
     Active Substance: SACUBITRIL\VALSARTAN
     Indication: CARDIAC FAILURE
     Dosage: 1 DF (24/26 MG), BID
     Route: 048
     Dates: start: 20170510, end: 20170523
  10. XIPAMIDE [Suspect]
     Active Substance: XIPAMIDE
     Dosage: UNK, PRN
     Route: 065
     Dates: start: 20170823, end: 20170826
  11. SPIRIVA [Concomitant]
     Active Substance: TIOTROPIUM BROMIDE MONOHYDRATE
     Indication: CHRONIC OBSTRUCTIVE PULMONARY DISEASE
     Dosage: 1 DF, QD
     Route: 055
     Dates: start: 20160329
  12. AMIODARONE [Concomitant]
     Active Substance: AMIODARONE
     Indication: ARRHYTHMIA
     Dosage: 1 DF, QD
     Route: 048
     Dates: start: 20170314
  13. FUROSEMIDE. [Suspect]
     Active Substance: FUROSEMIDE
     Indication: CARDIAC FAILURE
     Dosage: 1 DF (120 MG), BID
     Route: 048
     Dates: start: 201709
  14. ATORVASTATIN [Concomitant]
     Active Substance: ATORVASTATIN
     Indication: HYPERCHOLESTEROLAEMIA
     Dosage: 1 DF, QD
     Route: 048
     Dates: start: 20170307
  15. PANTOPRAZOLE [Concomitant]
     Active Substance: PANTOPRAZOLE
     Indication: GASTRITIS
     Dosage: 1 DF, QD
     Route: 048
     Dates: start: 20170406
  16. ENTRESTO [Suspect]
     Active Substance: SACUBITRIL\VALSARTAN
     Dosage: UNK
     Route: 048
     Dates: start: 20171026

REACTIONS (6)
  - Renal impairment [Recovering/Resolving]
  - Cardiac failure [Recovering/Resolving]
  - Respiratory failure [Fatal]
  - Cardiac failure chronic [Recovering/Resolving]
  - Pneumonia [Fatal]
  - Inguinal hernia [Recovered/Resolved]

NARRATIVE: CASE EVENT DATE: 20170823
